FAERS Safety Report 4725661-9 (Version None)
Quarter: 2005Q3

REPORT INFORMATION
  Report Type: 
  Country: None (occurrence: None)
  Receive Date: 20050727
  Receipt Date: 20050628
  Transmission Date: 20060218
  Serious: Yes (Other)
  Sender: FDA-Public Use
  Company Number: PHBS2005ES09295

PATIENT
  Age: 60 Year
  Sex: Female

DRUGS (1)
  1. ZOMETA [Suspect]
     Indication: BREAST CANCER FEMALE
     Dosage: UNK, QMO
     Route: 042
     Dates: start: 20040501, end: 20050601

REACTIONS (6)
  - BONE DEBRIDEMENT [None]
  - BONE DISORDER [None]
  - DENTAL OPERATION [None]
  - MOUTH ULCERATION [None]
  - TOOTH EXTRACTION [None]
  - WOUND DEBRIDEMENT [None]
